FAERS Safety Report 10753843 (Version 2)
Quarter: 2015Q1

REPORT INFORMATION
  Report Type: Spontaneous
  Country: AT (occurrence: None)
  Receive Date: 20150129
  Receipt Date: 20150209
  Transmission Date: 20150721
  Serious: No
  Sender: FDA-Public Use
  Company Number: AT-LHC-2015007

PATIENT
  Age: 75 Year
  Sex: Male

DRUGS (1)
  1. CONOXIA, MEDIZINISCHES GAS (OXYGEN) (GAS FOR INHALATION) (VERUM ) [Suspect]
     Active Substance: OXYGEN
     Route: 055
     Dates: start: 20140929, end: 20141230

REACTIONS (11)
  - Parosmia [None]
  - Pallor [None]
  - Nervousness [None]
  - Feeling abnormal [None]
  - Headache [None]
  - Dyspnoea [None]
  - Product odour abnormal [None]
  - Dysphonia [None]
  - Yellow skin [None]
  - Fear [None]
  - Tremor [None]

NARRATIVE: CASE EVENT DATE: 20141230
